FAERS Safety Report 17787967 (Version 6)
Quarter: 2020Q2

REPORT INFORMATION
  Report Type: Spontaneous
  Country: US (occurrence: US)
  Receive Date: 20200515
  Receipt Date: 20200625
  Transmission Date: 20200714
  Serious: Yes (Death, Hospitalization, Other)
  Sender: FDA-Public Use
  Company Number: US-GLAXOSMITHKLINE-US2020AMR077573

PATIENT
  Sex: Male

DRUGS (2)
  1. FLOLAN [Suspect]
     Active Substance: EPOPROSTENOL SODIUM
     Indication: PULMONARY ARTERIAL HYPERTENSION
     Dosage: 59 DF, CO
     Route: 065
     Dates: start: 20050516
  2. FLOLAN DILUENT PH 12 [Suspect]
     Active Substance: GLYCINE\MANNITOL\SODIUM CHLORIDE
     Indication: PULMONARY ARTERIAL HYPERTENSION
     Dosage: UNK
     Route: 065
     Dates: start: 20160929

REACTIONS (8)
  - Pyrexia [Unknown]
  - White blood cell count increased [Unknown]
  - Pain [Unknown]
  - Complication associated with device [Unknown]
  - Infection [Unknown]
  - Intensive care [Unknown]
  - Pulmonary arterial hypertension [Fatal]
  - Arthralgia [Unknown]
